FAERS Safety Report 6244166-X (Version None)
Quarter: 2009Q2

REPORT INFORMATION
  Report Type: 
  Country: None (occurrence: None)
  Receive Date: 20090625
  Receipt Date: 20090623
  Transmission Date: 20091009
  Serious: Yes (Other)
  Sender: FDA-Public Use
  Company Number: US-BAYER-200921042NA

PATIENT
  Age: 65 Year
  Sex: Male

DRUGS (6)
  1. CIPRO [Suspect]
     Indication: INFECTION
     Dosage: TOTAL DAILY DOSE: 1000 MG  UNIT DOSE: 500 MG
     Dates: start: 20090416, end: 20090427
  2. SIMVASTATIN [Concomitant]
  3. TRIAVIL [Concomitant]
  4. METFORMIN [Concomitant]
     Dosage: TOTAL DAILY DOSE: 2000 MG
  5. ZANTAC [Concomitant]
  6. ZIAC [Concomitant]

REACTIONS (2)
  - LIGAMENT RUPTURE [None]
  - MUSCULAR WEAKNESS [None]
